FAERS Safety Report 18303249 (Version 1)
Quarter: 2020Q3

REPORT INFORMATION
  Report Type: Spontaneous
  Country: DE (occurrence: DE)
  Receive Date: 20200924
  Receipt Date: 20200924
  Transmission Date: 20201103
  Serious: Yes (Hospitalization)
  Sender: FDA-Public Use
  Company Number: DE-DRREDDYS-GER/GER/20/0127017

PATIENT
  Age: 84 Year
  Sex: Male
  Weight: 68 kg

DRUGS (11)
  1. ALLOPURINOL. [Suspect]
     Active Substance: ALLOPURINOL
     Indication: PRODUCT USED FOR UNKNOWN INDICATION
     Dosage: 100 MG, 1?0?0?0, TABLETTEN
     Route: 048
  2. TORASEMID [Suspect]
     Active Substance: TORSEMIDE
     Indication: PRODUCT USED FOR UNKNOWN INDICATION
     Dosage: 10 MG, 2?0?0?0, TABLETTEN
     Route: 048
  3. CANDESARTAN. [Suspect]
     Active Substance: CANDESARTAN
     Indication: PRODUCT USED FOR UNKNOWN INDICATION
     Dosage: 16 MG, 0.5?0?0?0, TABLETTEN
     Route: 048
  4. SPIOLTO RESPIMAT 2,5MIKROGRAMM/2,5MIKROGRAMM [Concomitant]
     Indication: PRODUCT USED FOR UNKNOWN INDICATION
     Dosage: 2.5|2.5 MICROG, 2?0?0?0, DOSIERAEROSOL
     Route: 055
  5. SIMVASTATIN. [Concomitant]
     Active Substance: SIMVASTATIN
     Indication: PRODUCT USED FOR UNKNOWN INDICATION
     Dosage: 20 MG, 0?0?1?0, TABLETTEN
     Route: 048
  6. COLECALCIFEROL (VITAMIN D) [Concomitant]
     Indication: PRODUCT USED FOR UNKNOWN INDICATION
     Dosage: 1000 IE, 1?0?0?0, TABLETTEN
     Route: 048
  7. LEFLUNOMID [Suspect]
     Active Substance: LEFLUNOMIDE
     Indication: PRODUCT USED FOR UNKNOWN INDICATION
     Dosage: 10 MG, 1?0?0?0, TABLETTEN
     Route: 048
  8. PANTOPRAZOLE [Concomitant]
     Active Substance: PANTOPRAZOLE
     Indication: PRODUCT USED FOR UNKNOWN INDICATION
     Dosage: 40 MG, 1?0?0?0, TABLETTEN
     Route: 048
  9. BUDESONIDE. [Concomitant]
     Active Substance: BUDESONIDE
     Indication: PRODUCT USED FOR UNKNOWN INDICATION
     Dosage: 0.2 MG, 1?0?1?0, KAPSELN
     Route: 055
  10. APIXABAN [Concomitant]
     Active Substance: APIXABAN
     Indication: PRODUCT USED FOR UNKNOWN INDICATION
     Dosage: 2.5 MG, 1?0?1?0, TABLETTEN
     Route: 048
  11. SALBUTAMOL [Concomitant]
     Active Substance: ALBUTEROL
     Indication: PRODUCT USED FOR UNKNOWN INDICATION
     Dosage: 0.1 MG, 1?0?0?0, DOSIERAEROSOL
     Route: 055

REACTIONS (6)
  - Condition aggravated [Recovering/Resolving]
  - General physical health deterioration [Recovering/Resolving]
  - Electrolyte imbalance [Recovering/Resolving]
  - Oedema peripheral [Recovering/Resolving]
  - Dyspnoea [Recovering/Resolving]
  - Fatigue [Recovering/Resolving]
